FAERS Safety Report 7803481-6 (Version None)
Quarter: 2011Q4

REPORT INFORMATION
  Report Type: 
  Country: None (occurrence: None)
  Receive Date: 20111007
  Receipt Date: 20110929
  Transmission Date: 20120403
  Serious: Yes (Life-Threatening, Other)
  Sender: FDA-Public Use
  Company Number: DE-RB-012654-10

PATIENT
  Age: 35 Year
  Sex: Male
  Weight: 100 kg

DRUGS (2)
  1. SUBUTEX [Suspect]
     Indication: DRUG DEPENDENCE
     Route: 048
     Dates: start: 20040402
  2. SUBUTEX [Suspect]
     Dosage: DOSAGE REDUCED TO 24 MG/DIE
     Route: 048

REACTIONS (3)
  - SKIN ULCER [None]
  - OEDEMA PERIPHERAL [None]
  - FILARIASIS [None]
